FAERS Safety Report 6008321-6 (Version None)
Quarter: 2008Q4

REPORT INFORMATION
  Report Type: 
  Country: None (occurrence: None)
  Receive Date: 20081217
  Receipt Date: 20081030
  Transmission Date: 20090506
  Serious: No
  Sender: FDA-Public Use
  Company Number: US-AMGEN-KDL316543

PATIENT
  Sex: Female

DRUGS (3)
  1. ENBREL [Suspect]
     Indication: ANKYLOSING SPONDYLITIS
     Route: 058
     Dates: start: 20080501
  2. METHOTREXATE [Concomitant]
     Route: 048
     Dates: start: 20080501
  3. SULFASALAZINE [Concomitant]

REACTIONS (1)
  - INJECTION SITE HAEMORRHAGE [None]
